FAERS Safety Report 9089054 (Version 1)
Quarter: 2013Q1

REPORT INFORMATION
  Report Type: Spontaneous
  Country: US (occurrence: US)
  Receive Date: 20130201
  Receipt Date: 20130201
  Transmission Date: 20140127
  Serious: No
  Sender: FDA-Public Use
  Company Number: US-B.I. PHARMACEUTICALS,INC./RIDGEFIELD-2013-BI-02640BP

PATIENT
  Sex: 0

DRUGS (2)
  1. TRADJENTA [Suspect]
     Indication: TYPE 2 DIABETES MELLITUS
     Dosage: 5 MG
     Route: 048
  2. LONG ACTING INSULIN [Concomitant]
     Indication: TYPE 2 DIABETES MELLITUS

REACTIONS (2)
  - Hyperglycaemia [Not Recovered/Not Resolved]
  - Somnolence [Not Recovered/Not Resolved]
